FAERS Safety Report 21298793 (Version 2)
Quarter: 2022Q3

REPORT INFORMATION
  Report Type: Spontaneous
  Country: BR (occurrence: BR)
  Receive Date: 20220906
  Receipt Date: 20220916
  Transmission Date: 20221027
  Serious: Yes (Other)
  Sender: FDA-Public Use
  Company Number: BR-ORGANON-O2209BRA000074

PATIENT
  Age: 13 Year
  Sex: Female
  Weight: 62 kg

DRUGS (8)
  1. ETONOGESTREL [Suspect]
     Active Substance: ETONOGESTREL
     Indication: Prophylaxis
     Dosage: 1 IMPLANT IN THE LEFT ARM
     Route: 059
     Dates: start: 20220310, end: 20220809
  2. ETONOGESTREL [Suspect]
     Active Substance: ETONOGESTREL
     Indication: Menstrual disorder
  3. ETONOGESTREL [Suspect]
     Active Substance: ETONOGESTREL
     Indication: Premenstrual syndrome
  4. COENZIMA Q-10 [Concomitant]
     Dosage: 600 MG EVERY DAY
  5. CANNABIDIOL [Concomitant]
     Active Substance: CANNABIDIOL
     Dosage: UNK
  6. LEVETIRACETAM [Concomitant]
     Active Substance: LEVETIRACETAM
     Dosage: UNK
  7. TOPIRAMATE [Concomitant]
     Active Substance: TOPIRAMATE
     Dosage: UNK
  8. PHENOBARBITAL [Concomitant]
     Active Substance: PHENOBARBITAL
     Dosage: UNK

REACTIONS (10)
  - Epilepsy [Recovered/Resolved]
  - Epilepsy [Not Recovered/Not Resolved]
  - Hormone level abnormal [Recovering/Resolving]
  - Agitation [Recovering/Resolving]
  - Premenstrual syndrome [Recovering/Resolving]
  - Polymenorrhoea [Recovered/Resolved]
  - Mood altered [Recovering/Resolving]
  - Heavy menstrual bleeding [Recovered/Resolved]
  - Drug ineffective for unapproved indication [Unknown]
  - Product use in unapproved indication [Unknown]

NARRATIVE: CASE EVENT DATE: 20220101
